FAERS Safety Report 19411400 (Version 1)
Quarter: 2021Q2

REPORT INFORMATION
  Report Type: Spontaneous
  Country: US (occurrence: US)
  Receive Date: 20210614
  Receipt Date: 20210614
  Transmission Date: 20210717
  Serious: Yes (Death)
  Sender: FDA-Public Use
  Company Number: None

PATIENT
  Age: 74 Year
  Sex: Male
  Weight: 36.72 kg

DRUGS (17)
  1. FUROSEMIDE 30MG QD PRN [Concomitant]
  2. TRAZODONE 50MG QHS [Concomitant]
  3. VITAMIN D3 1000 UNITS QD [Concomitant]
  4. DOCUSATE 100MG BID [Concomitant]
  5. AMPICILLIN [Concomitant]
     Active Substance: AMPICILLIN
     Dates: start: 20210330, end: 20210330
  6. CITIRIZINE 10MG QD [Concomitant]
  7. FELODIPINE 5MG QD [Concomitant]
  8. CEFTRIAXONE 1000MG Q24H [Concomitant]
     Dates: start: 20210329, end: 20210329
  9. LEVOCETIRIZINE 5MG QPM [Concomitant]
  10. APIXABAN 5MG BID [Concomitant]
  11. AMOXICILLIN. [Concomitant]
     Active Substance: AMOXICILLIN
     Dates: start: 20210331, end: 20210331
  12. DOXAZOSIN 8MG QD [Concomitant]
  13. TAMSULOSIN 0.4MG QHS [Concomitant]
  14. IXAZOMIB 4MG QD [Concomitant]
     Dates: start: 20200720, end: 20210329
  15. BYSTOLIC 5MG QD [Concomitant]
  16. IBRUTINIB [Suspect]
     Active Substance: IBRUTINIB
     Indication: MANTLE CELL LYMPHOMA
     Route: 048
     Dates: start: 20200720, end: 20210329
  17. ESOMEPRAZOLE 40MG QAM [Concomitant]

REACTIONS (12)
  - Bradycardia [None]
  - Aortic dissection [None]
  - Hypoaesthesia [None]
  - Atrial fibrillation [None]
  - Pallor [None]
  - Peripheral coldness [None]
  - Agonal respiration [None]
  - Syncope [None]
  - Paraesthesia [None]
  - Chest pain [None]
  - Agitation [None]
  - Blood pressure increased [None]

NARRATIVE: CASE EVENT DATE: 20210329
